FAERS Safety Report 5807686-5 (Version None)
Quarter: 2008Q3

REPORT INFORMATION
  Report Type: 
  Country: None (occurrence: None)
  Receive Date: 20080708
  Receipt Date: 20080702
  Transmission Date: 20090109
  Serious: Yes (Other)
  Sender: FDA-Public Use
  Company Number: 2008SP013199

PATIENT
  Age: 62 Year
  Sex: Male
  Weight: 86 kg

DRUGS (4)
  1. TEMODAL [Suspect]
     Indication: GLIOBLASTOMA
     Dosage: 140 MG; QD; PO
     Route: 048
     Dates: start: 20080605, end: 20080611
  2. FORTECORTIN [Concomitant]
  3. NEXIUM [Concomitant]
  4. METOCLOPRAMIDE HYDROCHLORIDE [Concomitant]

REACTIONS (3)
  - ATRIAL FIBRILLATION [None]
  - ATRIAL FLUTTER [None]
  - TACHYCARDIA [None]
